FAERS Safety Report 6456290-7 (Version None)
Quarter: 2009Q4

REPORT INFORMATION
  Report Type: 
  Country: None (occurrence: None)
  Receive Date: 20091125
  Receipt Date: 20091112
  Transmission Date: 20100525
  Serious: Yes (Hospitalization)
  Sender: FDA-Public Use
  Company Number: US-ROCHE-666717

PATIENT
  Sex: Female
  Weight: 54.4 kg

DRUGS (16)
  1. TAMIFLU [Suspect]
     Indication: INFLUENZA LIKE ILLNESS
     Route: 048
     Dates: start: 20091009, end: 20091010
  2. PROGRAF [Concomitant]
     Indication: PROPHYLAXIS AGAINST TRANSPLANT REJECTION
     Route: 048
     Dates: start: 20090326
  3. RAPAMUNE [Concomitant]
     Indication: PROPHYLAXIS AGAINST TRANSPLANT REJECTION
     Route: 048
     Dates: start: 20090908
  4. BACTRIM [Concomitant]
     Dosage: DRUG:BACTRIM SINGLE STREGNTH; FREQ:DAILY
     Route: 048
  5. RIFABUTIN [Concomitant]
     Dosage: TAKEN ON MONDAY, WEDNESDAY AND FRIDAY
     Route: 048
     Dates: start: 20090201
  6. ZITHROMAX [Concomitant]
     Dosage: TAKEN ON MONDAY, WEDNESDAY AND FRIDAY
     Route: 048
     Dates: start: 20090201
  7. ETHAMBUTOL HYDROCHLORIDE [Concomitant]
     Dosage: TAKEN ON MONDAY, WEDNESDAY AND FRIDAY
     Route: 048
     Dates: start: 20090201
  8. PROTONIX [Concomitant]
     Indication: PROPHYLAXIS
     Route: 048
     Dates: start: 20090301
  9. ASPIRIN [Concomitant]
     Dosage: FREQ:DAILY
     Route: 048
  10. CALCIUM/VITAMIN D [Concomitant]
     Route: 048
  11. CEFEPIME [Concomitant]
     Indication: INFECTION
     Dosage: DOSE: 1 GRAM X 1
     Route: 042
     Dates: start: 20091009
  12. ZOSYN [Concomitant]
     Indication: INFECTION
     Dosage: 3 DOSES
     Route: 042
     Dates: start: 20091009, end: 20091010
  13. PERCOCET [Concomitant]
     Dosage: ONE DOSE
     Route: 048
  14. REGLAN [Concomitant]
     Indication: NAUSEA
     Dosage: AS NEEDED
     Route: 048
     Dates: start: 20090301
  15. ZOFRAN [Concomitant]
     Indication: NAUSEA
     Dosage: AS NEEDED
     Route: 042
     Dates: start: 20091009, end: 20091014
  16. SENNA [Concomitant]
     Indication: CONSTIPATION
     Dosage: EVERY NIGHT
     Route: 048
     Dates: start: 20090301

REACTIONS (2)
  - HEPATIC ENZYME INCREASED [None]
  - MYCOBACTERIUM AVIUM COMPLEX INFECTION [None]
